FAERS Safety Report 10429374 (Version 1)
Quarter: 2014Q3

REPORT INFORMATION
  Report Type: Spontaneous
  Country: US (occurrence: None)
  Receive Date: 20140725
  Receipt Date: 20140725
  Transmission Date: 20150326
  Serious: Yes (Other)
  Sender: FDA-Public Use
  Company Number: 163-50794-14034841

PATIENT
  Age: 79 Year
  Sex: Female

DRUGS (5)
  1. ZOFRAN (ONDANSETRON HYDROCHLORIDE) [Concomitant]
  2. PROCRIT (ERYTHROPOIETIN) [Concomitant]
  3. PRBC (RED BLOOD CELLS, CONCENTRATED [Concomitant]
  4. VIDAZA [Suspect]
     Active Substance: AZACITIDINE
     Indication: MYELODYSPLASTIC SYNDROME
     Dates: start: 201301, end: 201307
  5. PLATELETS (PLATELETS) [Concomitant]
     Active Substance: HUMAN PLATELET, ALLOGENIC

REACTIONS (2)
  - Acute myeloid leukaemia [None]
  - Myelodysplastic syndrome transformation [None]

NARRATIVE: CASE EVENT DATE: 20130718
